FAERS Safety Report 6814088-1 (Version None)
Quarter: 2010Q3

REPORT INFORMATION
  Report Type: 
  Country: None (occurrence: None)
  Receive Date: 20100702
  Receipt Date: 20091020
  Transmission Date: 20110219
  Serious: Yes (Other)
  Sender: FDA-Public Use
  Company Number: A0805793A

PATIENT
  Age: 57 Year
  Sex: Female

DRUGS (11)
  1. ADVAIR DISKUS 100/50 [Suspect]
     Indication: ASTHMA
     Dosage: 2PUFF TWICE PER DAY
     Route: 055
     Dates: start: 20090827
  2. ADVAIR DISKUS 100/50 [Suspect]
     Dosage: 1PUFF TWICE PER DAY
     Route: 055
     Dates: end: 20090827
  3. QVAR 40 [Concomitant]
  4. LIPITOR [Concomitant]
  5. NEXIUM [Concomitant]
  6. LISINOPRIL [Concomitant]
  7. LOVAZA [Concomitant]
  8. CALCIUM CARBONATE [Concomitant]
  9. MULTI-VITAMIN [Concomitant]
  10. DIFLUCAN [Concomitant]
  11. HYDROCHLOROTHIAZIDE [Concomitant]

REACTIONS (2)
  - DRUG INEFFECTIVE [None]
  - OROPHARYNGEAL CANDIDIASIS [None]
